FAERS Safety Report 4451376-0 (Version None)
Quarter: 2004Q3

REPORT INFORMATION
  Report Type: 
  Country: None (occurrence: None)
  Receive Date: 20040915
  Receipt Date: 20040901
  Transmission Date: 20050211
  Serious: Yes (Other)
  Sender: FDA-Public Use
  Company Number: 2004061483

PATIENT
  Age: 61 Year
  Sex: Female

DRUGS (6)
  1. ZYRTEC [Suspect]
     Indication: ILL-DEFINED DISORDER
  2. ERYTHROPOIETIN (ERYTHROPOIETIN) [Suspect]
     Indication: ANAEMIA
     Dosage: UNK (40000 I.U., 2 IN 1 WK), SUBCUTANEOUS
     Route: 058
     Dates: start: 20040324
  3. ERYTHROPOIETIN (ERYTHROPOIETIN) [Suspect]
     Indication: MULTIPLE MYELOMA
     Dosage: UNK (40000 I.U., 2 IN 1 WK), SUBCUTANEOUS
     Route: 058
     Dates: start: 20040324
  4. BUDESONIDE (BUDESONIDE) [Suspect]
     Indication: ILL-DEFINED DISORDER
     Dosage: NASAL
     Route: 045
  5. RANITIDINE HYDROCHLORIDE [Suspect]
     Indication: ILL-DEFINED DISORDER
  6. ANTINEOPLASTIC AGENTS (ANTINEOPLASTIC AGENTS) [Suspect]
     Indication: MULTIPLE MYELOMA

REACTIONS (7)
  - APLASIA PURE RED CELL [None]
  - ARTHRALGIA [None]
  - BONE MARROW TRANSPLANT [None]
  - FATIGUE [None]
  - LEUKOPENIA [None]
  - PLATELET COUNT DECREASED [None]
  - RED BLOOD CELL COUNT DECREASED [None]
